FAERS Safety Report 5789356-5 (Version None)
Quarter: 2008Q2

REPORT INFORMATION
  Report Type: 
  Country: None (occurrence: None)
  Receive Date: 20080625
  Receipt Date: 20080625
  Transmission Date: 20081010
  Serious: Yes (Other)
  Sender: FDA-Public Use
  Company Number: None

PATIENT
  Age: 56 Year
  Sex: Female
  Weight: 163.2949 kg

DRUGS (1)
  1. SINGULAIR [Suspect]
     Indication: ASTHMA
     Dosage: 1 TABLET 1 TIME PER DAY PO
     Route: 048
     Dates: start: 20041015, end: 20080415

REACTIONS (12)
  - ANXIETY [None]
  - ASTHMA [None]
  - BLOOD GLUCOSE INCREASED [None]
  - CONDITION AGGRAVATED [None]
  - CRYING [None]
  - MENOPAUSE [None]
  - MOOD SWINGS [None]
  - MUSCLE SPASMS [None]
  - PANIC REACTION [None]
  - PARAESTHESIA [None]
  - PERIPHERAL COLDNESS [None]
  - THINKING ABNORMAL [None]
